FAERS Safety Report 19883486 (Version 1)
Quarter: 2021Q3

REPORT INFORMATION
  Report Type: Report from Study
  Country: None (occurrence: US)
  Receive Date: 20210926
  Receipt Date: 20210926
  Transmission Date: 20211014
  Serious: Yes (Other)
  Sender: FDA-Public Use
  Company Number: US-ABBVIE-21K-163-4091969-00

PATIENT
  Age: 64 Year
  Sex: Female

DRUGS (3)
  1. SKYRIZI [Suspect]
     Active Substance: RISANKIZUMAB-RZAA
     Indication: PSORIASIS
     Route: 058
     Dates: start: 20200929, end: 20210630
  2. MODERNA COVID?19 VACCINE [Concomitant]
     Active Substance: CX-024414
     Indication: COVID-19 IMMUNISATION
     Dosage: FIRST DOSE
     Route: 030
     Dates: start: 20210105, end: 20210105
  3. MODERNA COVID?19 VACCINE [Concomitant]
     Active Substance: CX-024414
     Dosage: 2ND DOSE
     Route: 030
     Dates: start: 20210202, end: 20210202

REACTIONS (1)
  - Breast cancer female [Unknown]

NARRATIVE: CASE EVENT DATE: 202109
